FAERS Safety Report 25237017 (Version 1)
Quarter: 2025Q2

REPORT INFORMATION
  Report Type: Report from Study
  Country: US (occurrence: US)
  Receive Date: 20250424
  Receipt Date: 20250424
  Transmission Date: 20250716
  Serious: Yes (Hospitalization, Other)
  Sender: ABBVIE
  Company Number: US-ABBVIE-6242343

PATIENT
  Age: 48 Year
  Sex: Female

DRUGS (1)
  1. RINVOQ [Suspect]
     Active Substance: UPADACITINIB
     Indication: Psoriatic arthropathy
     Route: 048
     Dates: start: 20240725

REACTIONS (4)
  - Wrist fracture [Recovering/Resolving]
  - Fall [Unknown]
  - Joint dislocation [Unknown]
  - Open fracture [Unknown]

NARRATIVE: CASE EVENT DATE: 20250222
